FAERS Safety Report 9190775 (Version 2)
Quarter: 2013Q1

REPORT INFORMATION
  Report Type: Report from Study
  Country: IT (occurrence: IT)
  Receive Date: 20130326
  Receipt Date: 20130329
  Transmission Date: 20140127
  Serious: Yes (Death, Other)
  Sender: FDA-Public Use
  Company Number: IT-ROCHE-1206139

PATIENT
  Age: 65 Year
  Sex: Male

DRUGS (2)
  1. ALTEPLASE [Suspect]
     Indication: MYOCARDIAL INFARCTION
     Route: 065
  2. ALTEPLASE [Suspect]
     Indication: ELECTROCARDIOGRAM ST SEGMENT ELEVATION

REACTIONS (4)
  - Cardiogenic shock [Fatal]
  - Cerebral haemorrhage [Unknown]
  - Neurological symptom [Unknown]
  - Drug ineffective [Unknown]
